FAERS Safety Report 15541278 (Version 1)
Quarter: 2018Q4

REPORT INFORMATION
  Report Type: Spontaneous
  Country: CN (occurrence: CN)
  Receive Date: 20181023
  Receipt Date: 20181023
  Transmission Date: 20190205
  Serious: Yes (Hospitalization)
  Sender: FDA-Public Use
  Company Number: CN-SANIK-2018SA289823AA

PATIENT
  Age: 69 Year
  Sex: Male

DRUGS (7)
  1. METOPROLOL SALT NOT SPECIFIED [Suspect]
     Active Substance: METOPROLOL
     Dosage: 47.5 MG, QD
  2. AMLODIPINE BESYLATE. [Suspect]
     Active Substance: AMLODIPINE BESYLATE
     Dosage: 5 MG, QD
     Route: 065
  3. ATORVASTATIN CALCIUM. [Suspect]
     Active Substance: ATORVASTATIN CALCIUM
     Dosage: 10 MG, QD
  4. PLAVIX [Suspect]
     Active Substance: CLOPIDOGREL BISULFATE
     Indication: CORONARY ARTERY DISEASE
     Dosage: 75 G, QD
  5. ACETYLSALICYLIC ACID [Suspect]
     Active Substance: ASPIRIN
     Dosage: 100 MG, QD
     Route: 065
  6. TICAGRELOR. [Suspect]
     Active Substance: TICAGRELOR
     Dosage: 45 MG, BID
  7. LOSARTAN POTASSIUM. [Suspect]
     Active Substance: LOSARTAN POTASSIUM
     Dosage: 50 MG, QD
     Route: 065

REACTIONS (10)
  - Erythema [Recovered/Resolved]
  - Pruritus [Recovered/Resolved]
  - Administration site papule [Recovered/Resolved]
  - Rash papular [Recovered/Resolved]
  - Skin hypertrophy [Recovered/Resolved]
  - Dry skin [Recovered/Resolved]
  - Eczema [Recovered/Resolved]
  - Blister [Recovered/Resolved]
  - Skin exfoliation [Recovering/Resolving]
  - Skin ulcer [Recovered/Resolved]
